FAERS Safety Report 9152656 (Version 1)
Quarter: 2013Q1

REPORT INFORMATION
  Report Type: Spontaneous
  Country: US (occurrence: US)
  Receive Date: 20130308
  Receipt Date: 20130308
  Transmission Date: 20140127
  Serious: Yes (Life-Threatening, Other)
  Sender: FDA-Public Use
  Company Number: US-ASTRAZENECA-2013SE14691

PATIENT
  Age: 79 Year
  Sex: Female
  Weight: 68 kg

DRUGS (6)
  1. TOPROL XL [Suspect]
     Indication: HYPERTENSION
     Route: 048
     Dates: start: 201206, end: 201302
  2. TOPROL XL [Suspect]
     Indication: HYPERTENSION
     Route: 048
     Dates: start: 201302
  3. CRESTOR [Suspect]
     Route: 048
     Dates: start: 201201
  4. ATIVAN [Concomitant]
     Indication: HYPOTONIA
     Dosage: HS
     Route: 048
  5. PAXIL [Concomitant]
     Indication: DEPRESSION
     Dosage: DAILY
     Route: 048
  6. ASPIRIN [Concomitant]
     Indication: BLOOD CHOLESTEROL
     Route: 048

REACTIONS (11)
  - Brain neoplasm [Recovered/Resolved]
  - Cerebrovascular accident [Unknown]
  - Confusional state [Recovered/Resolved]
  - Visual impairment [Recovered/Resolved]
  - Blood pressure increased [Recovered/Resolved]
  - Heart rate decreased [Recovered/Resolved]
  - Fall [Recovered/Resolved]
  - Asthenia [Recovering/Resolving]
  - Dizziness [Recovered/Resolved]
  - Off label use [Unknown]
  - Drug dose omission [Unknown]
